FAERS Safety Report 6466634-8 (Version None)
Quarter: 2009Q4

REPORT INFORMATION
  Report Type: 
  Country: None (occurrence: None)
  Receive Date: 20091202
  Receipt Date: 20091119
  Transmission Date: 20100525
  Serious: Yes (Death, Disabling, Other)
  Sender: FDA-Public Use
  Company Number: JP-PFIZER INC-2009302717

PATIENT
  Age: 78 Year

DRUGS (19)
  1. LIPITOR [Suspect]
     Dosage: 10 MG, DAILY
     Route: 065
     Dates: end: 20090914
  2. PLAVIX [Suspect]
     Dosage: 75 MG, DAILY
     Route: 048
     Dates: end: 20090914
  3. ANCARON [Suspect]
     Indication: VENTRICULAR TACHYARRHYTHMIA
     Dosage: 1.25 MG/DL, ONCE
     Route: 042
     Dates: start: 20090905, end: 20090905
  4. ANCARON [Suspect]
     Indication: VENTRICULAR FIBRILLATION
     Dosage: 1.5 MG/DL, ONCE
     Route: 042
     Dates: start: 20090905, end: 20090906
  5. ANCARON [Suspect]
     Dosage: 1.5 MG/DL, ONCE
     Route: 042
     Dates: start: 20090906, end: 20090907
  6. ANCARON [Suspect]
     Dosage: 200 MG, DAILY
     Dates: start: 20090907, end: 20090914
  7. TAKEPRON [Suspect]
     Indication: DRUG USE FOR UNKNOWN INDICATION
     Dosage: 30 MG, DAILY
     Route: 065
     Dates: end: 20090914
  8. ASPIRIN [Suspect]
     Indication: DRUG USE FOR UNKNOWN INDICATION
     Dosage: 100 MG, DAILY
     Route: 065
     Dates: end: 20090914
  9. MAGNESIUM OXIDE [Suspect]
     Indication: DRUG USE FOR UNKNOWN INDICATION
     Dosage: 990 MG, DAILY
     Route: 065
     Dates: end: 20090914
  10. NORADRENALINE [Concomitant]
     Dosage: UNK
     Dates: start: 20090905, end: 20090916
  11. DOBUTAMINE HYDROCHLORIDE [Concomitant]
     Dosage: UNK
     Dates: start: 20090905, end: 20090913
  12. INOVAN [Concomitant]
     Dosage: UNK
     Dates: start: 20090905, end: 20090923
  13. DEXMEDETOMIDINE HYDROCHLORIDE [Concomitant]
     Dosage: UNK
     Dates: start: 20090905, end: 20090915
  14. LANDIOLOL HYDROCHLORIDE [Concomitant]
     Dosage: UNK
     Dates: start: 20090905, end: 20090918
  15. ELASPOL [Concomitant]
     Dosage: UNK
     Dates: start: 20090905, end: 20090918
  16. DIPRIVAN [Concomitant]
     Dosage: UNK
     Dates: start: 20090907, end: 20090913
  17. CARPERITIDE [Concomitant]
     Dosage: UNK
     Dates: start: 20090911, end: 20090922
  18. NITROGLYCERIN [Concomitant]
     Dosage: UNK
     Dates: start: 20090914, end: 20090922
  19. HEPARIN [Concomitant]
     Dosage: UNK
     Dates: start: 20090905, end: 20090920

REACTIONS (7)
  - ACUTE MYOCARDIAL INFARCTION [None]
  - CARDIAC FAILURE ACUTE [None]
  - HEPATIC FAILURE [None]
  - JAUNDICE [None]
  - MULTI-ORGAN FAILURE [None]
  - VENTRICULAR FIBRILLATION [None]
  - VENTRICULAR TACHYCARDIA [None]
